FAERS Safety Report 8867503 (Version 1)
Quarter: 2012Q4

REPORT INFORMATION
  Report Type: 
  Country: US (occurrence: US)
  Receive Date: 20121025
  Receipt Date: 20121025
  Transmission Date: 20130627
  Serious: No
  Sender: FDA-Public Use
  Company Number: US-AMGEN-USASP2012016986

PATIENT
  Sex: Female
  Weight: 68.03 kg

DRUGS (11)
  1. ENBREL [Suspect]
     Indication: PRODUCT USED FOR UNKNOWN INDICATION
     Dosage: 50 mg, qwk
     Route: 058
  2. CLARITIN                           /00413701/ [Concomitant]
     Dosage: 10 mg, UNK
  3. DIAZEPAM [Concomitant]
     Dosage: 2 mg, UNK
  4. LISINOPRIL [Concomitant]
     Dosage: 2.5 mg, UNK
  5. WELLBUTRIN [Concomitant]
     Dosage: 100 mg, UNK
  6. METOPROLOL [Concomitant]
     Dosage: 500 mg, UNK
  7. BUSPAR [Concomitant]
     Dosage: 10 mg, UNK
  8. FLEXERIL                           /00428402/ [Concomitant]
     Dosage: 5 mg, UNK
  9. HYDROXYZINE HCL [Concomitant]
     Dosage: 10 mg, UNK
  10. CLOBETASOL 0.05% [Concomitant]
  11. MULTI DAY MULTIVITAMIN PLUS IRON [Concomitant]

REACTIONS (1)
  - Urticaria [Unknown]
